FAERS Safety Report 21863790 (Version 8)
Quarter: 2023Q2

REPORT INFORMATION
  Report Type: Spontaneous
  Country: AR (occurrence: AR)
  Receive Date: 20230116
  Receipt Date: 20230630
  Transmission Date: 20230721
  Serious: Yes (Hospitalization, Other)
  Sender: FDA-Public Use
  Company Number: US-002147023-NVSC2023US004451

PATIENT
  Age: 78 Year
  Sex: Male
  Weight: 79 kg

DRUGS (21)
  1. LEUPROLIDE ACETATE [Suspect]
     Active Substance: LEUPROLIDE ACETATE
     Indication: Prostate cancer metastatic
     Dosage: 22.5 MG (EVERY 21 DAYS)
     Route: 065
     Dates: start: 20220425
  2. LEUPROLIDE ACETATE [Suspect]
     Active Substance: LEUPROLIDE ACETATE
     Dosage: UNK
     Route: 065
     Dates: start: 20220516
  3. LEUPROLIDE ACETATE [Suspect]
     Active Substance: LEUPROLIDE ACETATE
     Dosage: UNK
     Route: 065
     Dates: start: 20220606
  4. LEUPROLIDE ACETATE [Suspect]
     Active Substance: LEUPROLIDE ACETATE
     Dosage: UNK
     Route: 065
     Dates: start: 20220627
  5. ENZALUTAMIDE [Suspect]
     Active Substance: ENZALUTAMIDE
     Indication: Prostate cancer metastatic
     Dosage: 40 MG, EVERY 21 DAYS
     Route: 048
     Dates: start: 20220425
  6. ENZALUTAMIDE [Suspect]
     Active Substance: ENZALUTAMIDE
     Dosage: UNK
     Route: 065
     Dates: start: 20220516
  7. ENZALUTAMIDE [Suspect]
     Active Substance: ENZALUTAMIDE
     Dosage: UNK
     Route: 065
     Dates: start: 20220606
  8. ENZALUTAMIDE [Suspect]
     Active Substance: ENZALUTAMIDE
     Dosage: UNK
     Route: 065
     Dates: start: 20220627
  9. ENZALUTAMIDE [Suspect]
     Active Substance: ENZALUTAMIDE
     Dosage: 160 MG, QD
     Route: 048
  10. ENALAPRIL\HYDROCHLOROTHIAZIDE [Concomitant]
     Active Substance: ENALAPRIL\HYDROCHLOROTHIAZIDE
     Indication: Arteriosclerosis coronary artery
     Dosage: UNK
     Route: 048
     Dates: start: 19991201, end: 20220713
  11. ATEL [Concomitant]
     Indication: Arteriosclerosis coronary artery
     Dosage: UNK
     Route: 048
     Dates: start: 19991201, end: 20220713
  12. ALPRAZOLAM [Concomitant]
     Active Substance: ALPRAZOLAM
     Indication: Insomnia
     Dosage: UNK
     Route: 048
     Dates: start: 19991201
  13. SINLIP [Concomitant]
     Indication: Arteriosclerosis coronary artery
     Dosage: UNK
     Route: 048
     Dates: start: 19991201
  14. URALOS [Concomitant]
     Indication: Benign prostatic hyperplasia
     Dosage: UNK (CR-CONTROLLED RELEASE)
     Route: 048
     Dates: start: 20151201
  15. TRUSOPT [Concomitant]
     Active Substance: DORZOLAMIDE HYDROCHLORIDE
     Indication: Glaucoma
     Dosage: UNK
     Route: 047
     Dates: start: 19801201
  16. LOUTEN [Concomitant]
     Indication: Glaucoma
     Dosage: UNK
     Route: 047
     Dates: start: 19991201
  17. DEXAMETHASONE [Concomitant]
     Active Substance: DEXAMETHASONE
     Indication: Chemotherapy side effect prophylaxis
     Dosage: 4 MG, QD
     Route: 048
     Dates: start: 20220424, end: 20220425
  18. DEXAMETHASONE [Concomitant]
     Active Substance: DEXAMETHASONE
     Dosage: 4 MG, QD
     Route: 048
     Dates: start: 20220426, end: 20220427
  19. DEXAMETHASONE [Concomitant]
     Active Substance: DEXAMETHASONE
     Dosage: 4 MG, QD
     Route: 048
     Dates: start: 20220515, end: 20220516
  20. BICALUTAMIDE [Concomitant]
     Active Substance: BICALUTAMIDE
     Indication: Product used for unknown indication
     Dosage: 50 MG, QD
     Route: 065
     Dates: start: 20221129
  21. ABIRATERONE [Concomitant]
     Active Substance: ABIRATERONE
     Indication: Product used for unknown indication
     Dosage: 250 MG, QID
     Route: 065
     Dates: start: 20220505

REACTIONS (24)
  - Intensive care unit acquired weakness [Recovered/Resolved with Sequelae]
  - Acute kidney injury [Recovered/Resolved]
  - Atrial fibrillation [Recovered/Resolved]
  - COVID-19 pneumonia [Unknown]
  - Productive cough [Unknown]
  - Asthenia [Unknown]
  - Odynophagia [Unknown]
  - Haemorrhage intracranial [Recovered/Resolved]
  - Neutropenia [Recovered/Resolved]
  - Tracheobronchitis bacterial [Unknown]
  - Eschar [Unknown]
  - Osteochondrosis [Unknown]
  - Thrombocytopenia [Unknown]
  - Hypokalaemia [Unknown]
  - Neutropenia [Recovered/Resolved]
  - Muscular weakness [Unknown]
  - Disturbance in attention [Unknown]
  - Polyuria [Unknown]
  - Gastric pneumatosis [Unknown]
  - Memory impairment [Unknown]
  - Gynaecomastia [Unknown]
  - Anaemia [Unknown]
  - Emphysema [Unknown]
  - Diarrhoea [Unknown]

NARRATIVE: CASE EVENT DATE: 20220527
